FAERS Safety Report 24714884 (Version 2)
Quarter: 2024Q4

REPORT INFORMATION
  Report Type: Spontaneous
  Country: US (occurrence: US)
  Receive Date: 20241210
  Receipt Date: 20241210
  Transmission Date: 20250114
  Serious: Yes (Other)
  Sender: Kenvue
  Company Number: US-KENVUE-20241200389

PATIENT

DRUGS (1)
  1. IMODIUM MULTI-SYMPTOM RELIEF [Suspect]
     Active Substance: DIMETHICONE\LOPERAMIDE HYDROCHLORIDE
     Indication: Low anterior resection syndrome
     Route: 048

REACTIONS (4)
  - Foreign body in throat [Unknown]
  - Product size issue [Unknown]
  - Product package associated injury [Unknown]
  - Product packaging difficult to open [Unknown]
